FAERS Safety Report 24182763 (Version 3)
Quarter: 2024Q3

REPORT INFORMATION
  Report Type: Report from Study
  Country: FR (occurrence: FR)
  Receive Date: 20240807
  Receipt Date: 20240909
  Transmission Date: 20241016
  Serious: Yes (Hospitalization, Other)
  Sender: ASTELLAS
  Company Number: FR-ASTELLAS-2024US022038

PATIENT
  Age: 50 Year
  Sex: Male

DRUGS (2)
  1. ENFORTUMAB VEDOTIN-EJFV [Suspect]
     Active Substance: ENFORTUMAB VEDOTIN-EJFV
     Indication: Bladder transitional cell carcinoma
     Dosage: 4 CURES SINCE 15-APR-2024, HIS LAST PADCEV CYCLE 4 DAY 15 DATED FROM 25-JUL-2024
     Route: 065
     Dates: start: 20240415, end: 20240725
  2. ENFORTUMAB VEDOTIN-EJFV [Suspect]
     Active Substance: ENFORTUMAB VEDOTIN-EJFV
     Indication: Transitional cell carcinoma metastatic
     Dosage: 25% REDUCTION IN THE RECOMMENDED DOSE OF 1.25MG/KG
     Route: 065
     Dates: start: 20240903

REACTIONS (1)
  - Myocardial infarction [Unknown]

NARRATIVE: CASE EVENT DATE: 20240801
